FAERS Safety Report 6045560-2 (Version None)
Quarter: 2009Q1

REPORT INFORMATION
  Report Type: 
  Country: None (occurrence: None)
  Receive Date: 20090121
  Receipt Date: 20090114
  Transmission Date: 20090719
  Serious: Yes (Hospitalization, Other)
  Sender: FDA-Public Use
  Company Number: DE-BAYER-200833153GPV

PATIENT
  Age: 64 Year
  Sex: Male
  Weight: 67 kg

DRUGS (2)
  1. SORAFENIB [Suspect]
     Indication: HEPATIC NEOPLASM MALIGNANT
     Dosage: TOTAL DAILY DOSE: 400 MG
     Route: 048
     Dates: start: 20080202, end: 20081123
  2. TRANSARTERIAL CHEMOEMBOLIZATION (TACE) [Suspect]
     Indication: HEPATIC NEOPLASM MALIGNANT
     Route: 065

REACTIONS (6)
  - ABDOMINAL PAIN [None]
  - CHOLANGITIS [None]
  - DEPRESSED MOOD [None]
  - LIVER ABSCESS [None]
  - PYREXIA [None]
  - SEPSIS [None]
